FAERS Safety Report 15938517 (Version 1)
Quarter: 2019Q1

REPORT INFORMATION
  Report Type: Spontaneous
  Country: PT (occurrence: PT)
  Receive Date: 20190208
  Receipt Date: 20190208
  Transmission Date: 20190417
  Serious: Yes (Death, Hospitalization)
  Sender: FDA-Public Use
  Company Number: PT-MYLANLABS-2019M1011187

PATIENT
  Age: 58 Year
  Sex: Male

DRUGS (2)
  1. PARACETAMOL/TRAMADOL/TRAMADOL HYDROCHLORIDE [Suspect]
     Active Substance: ACETAMINOPHEN\TRAMADOL HYDROCHLORIDE
     Indication: BACK PAIN
     Dosage: UNK
     Route: 065
  2. DICLOFENAC [Concomitant]
     Active Substance: DICLOFENAC
     Indication: BACK PAIN
     Dosage: UNK
     Route: 048

REACTIONS (3)
  - Pain in extremity [Fatal]
  - Spinal osteoarthritis [None]
  - Drug ineffective [Fatal]
